FAERS Safety Report 9379893 (Version 1)
Quarter: 2013Q3

REPORT INFORMATION
  Report Type: Spontaneous
  Country: FR (occurrence: FR)
  Receive Date: 20130702
  Receipt Date: 20130702
  Transmission Date: 20140515
  Serious: Yes (Hospitalization)
  Sender: FDA-Public Use
  Company Number: FR-SANOFI-AVENTIS-2013SA065867

PATIENT
  Age: 22 Year
  Sex: Male

DRUGS (10)
  1. LOVENOX [Suspect]
     Indication: PRODUCT USED FOR UNKNOWN INDICATION
     Route: 058
     Dates: end: 20130424
  2. LOVENOX [Suspect]
     Indication: DEEP VEIN THROMBOSIS
     Route: 058
     Dates: end: 20130424
  3. LOVENOX [Suspect]
     Indication: PRODUCT USED FOR UNKNOWN INDICATION
     Route: 058
     Dates: start: 201305, end: 20130531
  4. LOVENOX [Suspect]
     Indication: DEEP VEIN THROMBOSIS
     Route: 058
     Dates: start: 201305, end: 20130531
  5. PREVISCAN [Concomitant]
     Indication: DEEP VEIN THROMBOSIS
     Route: 048
     Dates: end: 20130424
  6. PREVISCAN [Concomitant]
     Indication: DEEP VEIN THROMBOSIS
     Route: 048
     Dates: start: 20130524
  7. LEPONEX [Concomitant]
     Indication: SCHIZOPHRENIA
     Dates: end: 20130424
  8. LEPONEX [Concomitant]
     Indication: SCHIZOPHRENIA
     Dates: start: 20130503
  9. CLOPIXOL [Concomitant]
     Indication: SCHIZOPHRENIA
     Route: 048
     Dates: end: 20130424
  10. CLOPIXOL [Concomitant]
     Indication: SCHIZOPHRENIA
     Dates: start: 20130415, end: 20130424

REACTIONS (3)
  - Hepatitis [Recovering/Resolving]
  - Aspartate aminotransferase increased [Recovering/Resolving]
  - Alanine aminotransferase increased [Recovering/Resolving]
